FAERS Safety Report 5883987-X (Version None)
Quarter: 2008Q3

REPORT INFORMATION
  Report Type: 
  Country: None (occurrence: None)
  Receive Date: 20080915
  Receipt Date: 20080903
  Transmission Date: 20090109
  Serious: Yes (Other)
  Sender: FDA-Public Use
  Company Number: IL-ROCHE-584563

PATIENT
  Age: 50 Year
  Sex: Female

DRUGS (9)
  1. XELODA [Suspect]
     Dosage: TREATMENT GIVEN IN TWO DIVIDED DOSES ON DAYS 1-14 EVERY 3 WEEKS
     Route: 048
     Dates: start: 20080101
  2. XELODA [Suspect]
     Dosage: A THIRD CYCLE OF CAPECITABINE WAS STARTED WITH DAILY DOSES REDUCED TO 75% OF THE ORIGINAL DOSE.
     Route: 048
  3. BEVACIZUMAB [Suspect]
     Route: 065
  4. DOCETAXEL [Suspect]
     Route: 065
  5. LETROZOLE [Suspect]
     Route: 065
  6. BEZAFIBRATE [Concomitant]
     Indication: AMINO ACID METABOLISM DISORDER
  7. BEZAFIBRATE [Concomitant]
  8. ATENOLOL [Concomitant]
     Indication: HYPERTENSION
  9. IBUPROFEN [Concomitant]
     Indication: METASTATIC PAIN

REACTIONS (2)
  - HYPERTRIGLYCERIDAEMIA [None]
  - NEOPLASM PROGRESSION [None]
